FAERS Safety Report 8131076-6 (Version None)
Quarter: 2012Q1

REPORT INFORMATION
  Report Type: 
  Country: None (occurrence: None)
  Receive Date: 20120209
  Receipt Date: 20120209
  Transmission Date: 20120608
  Serious: Yes (Life-Threatening, Hospitalization, Disabling)
  Sender: FDA-Public Use
  Company Number: None

PATIENT
  Sex: Male
  Weight: 91.6266 kg

DRUGS (1)
  1. PREDNISONE [Suspect]
     Indication: HEMIPARESIS
     Dosage: 20 MG 1 DAILY FOR 7 DAY THEN HALF 7 DAY ORAL
     Route: 048
     Dates: start: 20090521

REACTIONS (10)
  - VISUAL IMPAIRMENT [None]
  - PSORIASIS [None]
  - PRURITUS [None]
  - SCAB [None]
  - MYALGIA [None]
  - GASTROINTESTINAL HAEMORRHAGE [None]
  - SKIN EXFOLIATION [None]
  - OROPHARYNGEAL PAIN [None]
  - SKIN LESION [None]
  - HEMIPARESIS [None]
